FAERS Safety Report 15936277 (Version 2)
Quarter: 2019Q2

REPORT INFORMATION
  Report Type: Report from Study
  Country: CO (occurrence: CO)
  Receive Date: 20190208
  Receipt Date: 20190516
  Transmission Date: 20190711
  Serious: Yes (Hospitalization, Other)
  Sender: FDA-Public Use
  Company Number: CO-AEGERION PHARMACEUTICAL, INC-AEGR004146

PATIENT

DRUGS (6)
  1. MYALEPT [Suspect]
     Active Substance: METRELEPTIN
     Dosage: 0.27 ML, QD
     Route: 058
     Dates: start: 20180803, end: 201811
  2. LISPRO [Concomitant]
     Active Substance: INSULIN LISPRO
     Indication: DIABETES MELLITUS
     Dosage: 6 ML, WITH EACH MEAL
     Route: 058
  3. MYALEPT [Suspect]
     Active Substance: METRELEPTIN
     Dosage: 0.35 ML, QD
     Route: 058
     Dates: start: 20190212
  4. MYALEPT [Suspect]
     Active Substance: METRELEPTIN
     Indication: LIPODYSTROPHY ACQUIRED
     Dosage: UNK
     Dates: start: 201807, end: 201807
  5. MYALEPT [Suspect]
     Active Substance: METRELEPTIN
     Dosage: 0.35 ML, QD
     Route: 058
     Dates: start: 201811, end: 20190130
  6. LEVEMIR [Concomitant]
     Active Substance: INSULIN DETEMIR
     Indication: DIABETES MELLITUS
     Dosage: 28 UI,QD
     Route: 058

REACTIONS (4)
  - Liver function test increased [Unknown]
  - Glycosylated haemoglobin increased [Recovered/Resolved]
  - Hypertriglyceridaemia [Recovered/Resolved]
  - Product dose omission [Recovered/Resolved]

NARRATIVE: CASE EVENT DATE: 201807
